FAERS Safety Report 16378625 (Version 1)
Quarter: 2019Q2

REPORT INFORMATION
  Report Type: Spontaneous
  Country: US (occurrence: US)
  Receive Date: 20190415
  Receipt Date: 20190415
  Transmission Date: 20190711
  Serious: Yes (Hospitalization)
  Sender: FDA-Public Use
  Company Number: None

PATIENT
  Age: 32 Year
  Sex: Male

DRUGS (2)
  1. STELARA [Suspect]
     Active Substance: USTEKINUMAB
     Indication: CROHN^S DISEASE
     Dosage: ?          OTHER FREQUENCY:EVERY 4 WEEKS;?
     Route: 058
  2. MORPHINE SUL TAB 15MG [Concomitant]
     Dates: start: 20181223

REACTIONS (2)
  - Fatigue [None]
  - Condition aggravated [None]

NARRATIVE: CASE EVENT DATE: 20190408
